FAERS Safety Report 5730199-6 (Version None)
Quarter: 2008Q2

REPORT INFORMATION
  Report Type: 
  Country: None (occurrence: None)
  Receive Date: 20080505
  Receipt Date: 20080505
  Transmission Date: 20081010
  Serious: Yes (Hospitalization)
  Sender: FDA-Public Use
  Company Number: None

PATIENT
  Sex: Female
  Weight: 95 kg

DRUGS (5)
  1. CISPLATIN [Suspect]
     Dosage: 95 MG
  2. DOXORUBICIN HYDROCHLORIDE [Suspect]
     Dosage: 85 MG
  3. TAXOL [Suspect]
     Dosage: 300 MG
  4. DIOVAN [Concomitant]
  5. LOPRESSOR [Concomitant]

REACTIONS (3)
  - DYSPHAGIA [None]
  - NEUTROPENIA [None]
  - THROMBOCYTOPENIA [None]
